FAERS Safety Report 25998309 (Version 1)
Quarter: 2025Q4

REPORT INFORMATION
  Report Type: Spontaneous
  Country: US (occurrence: US)
  Receive Date: 20251105
  Receipt Date: 20251105
  Transmission Date: 20260118
  Serious: No
  Sender: ABBVIE
  Company Number: US-ABBVIE-6529384

PATIENT
  Age: 55 Year
  Sex: Female

DRUGS (3)
  1. VYALEV [Suspect]
     Active Substance: FOSCARBIDOPA\FOSLEVODOPA
     Indication: Parkinson^s disease
     Dosage: BASE DOSE 0.36ML/HR = HIGH DOSE 0.39ML/HR FREQUENCY: CONTINUOUS 24-HOUR INFUSION
     Route: 058
     Dates: start: 20251030
  2. VYALEV [Suspect]
     Active Substance: FOSCARBIDOPA\FOSLEVODOPA
     Dosage: BASE DOSE 0.35ML/HR = HIGH DOSE 0.38ML/HR FREQUENCY: CONTINUOUS 24-HOUR INFUSION START DATE: MID ...
     Route: 058
     Dates: end: 20251030
  3. VYALEV [Suspect]
     Active Substance: FOSCARBIDOPA\FOSLEVODOPA
     Dosage: LAST ADMIN DATE: MID OF SEP 2025
     Route: 058
     Dates: start: 202509

REACTIONS (1)
  - Fatigue [Recovering/Resolving]

NARRATIVE: CASE EVENT DATE: 20251029
